FAERS Safety Report 19883956 (Version 2)
Quarter: 2021Q4

REPORT INFORMATION
  Report Type: Report from Study
  Country: IE (occurrence: IE)
  Receive Date: 20210927
  Receipt Date: 20211116
  Transmission Date: 20220304
  Serious: Yes (Other)
  Sender: FDA-Public Use
  Company Number: IE-BIOGEN-2020BI00946098

PATIENT
  Sex: Female

DRUGS (2)
  1. TECFIDERA [Suspect]
     Active Substance: DIMETHYL FUMARATE
     Indication: Relapsing-remitting multiple sclerosis
     Dosage: MAINTENANCE DOSE
     Route: 048
     Dates: start: 20201026
  2. TECFIDERA [Suspect]
     Active Substance: DIMETHYL FUMARATE
     Route: 048
     Dates: start: 20201026, end: 20210920

REACTIONS (10)
  - Acute haemorrhagic ulcerative colitis [Not Recovered/Not Resolved]
  - Product dose omission in error [Not Recovered/Not Resolved]
  - Syncope [Recovered/Resolved]
  - Gastric disorder [Unknown]
  - Rash pruritic [Recovered/Resolved]
  - Hot flush [Not Recovered/Not Resolved]
  - Flushing [Not Recovered/Not Resolved]
  - Erythema [Recovered/Resolved]
  - Diarrhoea [Unknown]
  - Prescribed underdose [Recovered/Resolved]

NARRATIVE: CASE EVENT DATE: 20210101
